FAERS Safety Report 8887104 (Version 1)
Quarter: 2012Q4

REPORT INFORMATION
  Report Type: 
  Country: US (occurrence: US)
  Receive Date: 20121105
  Receipt Date: 20121105
  Transmission Date: 20130627
  Serious: Yes (Hospitalization, Other)
  Sender: FDA-Public Use
  Company Number: US-ROCHE-1150797

PATIENT
  Age: 55 Year
  Sex: Female

DRUGS (4)
  1. AVASTIN [Suspect]
     Indication: NON-SMALL CELL LUNG CANCER
     Route: 065
  2. PEMETREXED [Concomitant]
     Indication: NON-SMALL CELL LUNG CANCER
  3. CARBOPLATIN [Concomitant]
  4. TAXOL [Concomitant]

REACTIONS (3)
  - Posterior reversible encephalopathy syndrome [Recovered/Resolved]
  - Atelectasis [Unknown]
  - Hypertension [Recovered/Resolved]
